FAERS Safety Report 7215877-4 (Version None)
Quarter: 2011Q1

REPORT INFORMATION
  Report Type: 
  Country: None (occurrence: None)
  Receive Date: 20110104
  Receipt Date: 20110104
  Transmission Date: 20110831
  Serious: Yes (Life-Threatening, Hospitalization)
  Sender: FDA-Public Use
  Company Number: None

PATIENT
  Sex: Male
  Weight: 75 kg

DRUGS (7)
  1. BENICAR [Concomitant]
  2. COREG [Concomitant]
  3. SIMVASTATIN [Concomitant]
  4. LOTENSIN [Concomitant]
  5. LASIX [Concomitant]
  6. PLAVIX [Suspect]
     Indication: CORONARY ARTERIAL STENT INSERTION
     Dosage: 75MG DAILY PO
     Route: 048
     Dates: start: 20101019, end: 20101216
  7. NEXIUM [Concomitant]

REACTIONS (3)
  - MICROANGIOPATHIC HAEMOLYTIC ANAEMIA [None]
  - THROMBOCYTOPENIA [None]
  - CONFUSIONAL STATE [None]
